FAERS Safety Report 13467410 (Version 1)
Quarter: 2017Q2

REPORT INFORMATION
  Report Type: Spontaneous
  Country: US (occurrence: US)
  Receive Date: 20170421
  Receipt Date: 20170421
  Transmission Date: 20170830
  Serious: Yes (Hospitalization)
  Sender: FDA-Public Use
  Company Number: US-JNJFOC-20170421433

PATIENT
  Age: 59 Year
  Sex: Female
  Weight: 75.3 kg

DRUGS (7)
  1. CONCERTA [Suspect]
     Active Substance: METHYLPHENIDATE HYDROCHLORIDE
     Indication: ATTENTION DEFICIT/HYPERACTIVITY DISORDER
     Route: 048
  2. HYDREA [Concomitant]
     Active Substance: HYDROXYUREA
     Indication: CHEMOTHERAPY
     Dosage: FOR POLYCYTHEMIA RUBRA VERA, EVERY MONDAY,  WEDNESDAY, AND FRIDAY.
     Route: 048
     Dates: start: 20161210
  3. RISPERDAL [Suspect]
     Active Substance: RISPERIDONE
     Indication: INSOMNIA
     Route: 048
  4. EFFEXOR [Concomitant]
     Active Substance: VENLAFAXINE HYDROCHLORIDE
     Indication: DEPRESSION
     Route: 048
  5. EFFEXOR [Concomitant]
     Active Substance: VENLAFAXINE HYDROCHLORIDE
     Indication: ANXIETY
     Route: 048
  6. WELLBUTRIN [Concomitant]
     Active Substance: BUPROPION HYDROCHLORIDE
     Indication: DEPRESSION
     Route: 048
  7. HYDREA [Concomitant]
     Active Substance: HYDROXYUREA
     Indication: CHEMOTHERAPY
     Dosage: FOR POLYCYTHEMIA RUBRA VERA, EVERY TUESDAY, THURSDAY, SATURDAY, AND SUNDAY
     Route: 048
     Dates: start: 20161210

REACTIONS (6)
  - Polycythaemia vera [Not Recovered/Not Resolved]
  - Drug dose omission [Unknown]
  - Intracranial aneurysm [Recovered/Resolved]
  - Product use in unapproved indication [Unknown]
  - Restless legs syndrome [Unknown]
  - Off label use [Unknown]

NARRATIVE: CASE EVENT DATE: 2005
